FAERS Safety Report 17367210 (Version 8)
Quarter: 2020Q3

REPORT INFORMATION
  Report Type: Spontaneous
  Country: US (occurrence: US)
  Receive Date: 20200204
  Receipt Date: 20200813
  Transmission Date: 20201102
  Serious: Yes (Other)
  Sender: FDA-Public Use
  Company Number: US-PFIZER INC-2020046423

PATIENT
  Age: 79 Year
  Sex: Female
  Weight: 122.9 kg

DRUGS (4)
  1. CORTISONE [Concomitant]
     Active Substance: CORTISONE
     Dosage: AS NEEDED
  2. FLECTOR [Suspect]
     Active Substance: DICLOFENAC EPOLAMINE
     Indication: INTERVERTEBRAL DISC DEGENERATION
  3. FLECTOR [Suspect]
     Active Substance: DICLOFENAC EPOLAMINE
     Indication: LUMBAR SPINAL STENOSIS
     Dosage: 1 DF, 2X/DAY (PLACE 1 PATCH ON THE SKIN 2 (TWO) TIMES A DAY)
     Route: 061
  4. FLECTOR [Suspect]
     Active Substance: DICLOFENAC EPOLAMINE
     Indication: RHEUMATOID ARTHRITIS
     Dosage: 2 PATCHES TO EITHER SIDE OF LOWER SPINE AND CHANGE EVERY 12 HOURS
     Route: 061

REACTIONS (4)
  - Dyspnoea [Unknown]
  - Off label use [Unknown]
  - Mental impairment [Not Recovered/Not Resolved]
  - Drug ineffective for unapproved indication [Unknown]
